FAERS Safety Report 14655671 (Version 1)
Quarter: 2018Q1

REPORT INFORMATION
  Report Type: Spontaneous
  Country: GB (occurrence: GB)
  Receive Date: 20180319
  Receipt Date: 20180319
  Transmission Date: 20180509
  Serious: Yes (Life-Threatening, Disabling)
  Sender: FDA-Public Use
  Company Number: GB-TEVA-2018-GB-870604

PATIENT
  Age: 20 Year
  Sex: Female
  Weight: 114.3 kg

DRUGS (2)
  1. RISPERIDONE. [Suspect]
     Active Substance: RISPERIDONE
     Indication: PSYCHOTIC DISORDER
     Route: 051
  2. OLANZAPINE. [Suspect]
     Active Substance: OLANZAPINE
     Indication: PSYCHOTIC DISORDER
     Route: 048

REACTIONS (11)
  - Indifference [Unknown]
  - Abnormal weight gain [Unknown]
  - Thinking abnormal [Unknown]
  - Suicidal ideation [Unknown]
  - Diabetes mellitus [Unknown]
  - Dissociative identity disorder [Unknown]
  - Feeling abnormal [Unknown]
  - Suicide attempt [Unknown]
  - Derealisation [Unknown]
  - Hallucination, auditory [Unknown]
  - Memory impairment [Unknown]
